FAERS Safety Report 17133089 (Version 1)
Quarter: 2019Q4

REPORT INFORMATION
  Report Type: Spontaneous
  Country: US (occurrence: US)
  Receive Date: 20191209
  Receipt Date: 20191209
  Transmission Date: 20200122
  Serious: Yes (Other)
  Sender: FDA-Public Use
  Company Number: None

PATIENT
  Age: 56 Year
  Sex: Female
  Weight: 97.2 kg

DRUGS (8)
  1. VENLAFAXINE XR ORIGINALLY 75MG, THEN 37.5MG [Suspect]
     Active Substance: VENLAFAXINE HYDROCHLORIDE
     Indication: HOT FLUSH
     Dosage: ?          QUANTITY:1 CAPSULE(S);?
     Route: 048
  2. ALBUTEROL INHALER [Concomitant]
     Active Substance: ALBUTEROL
  3. GENERIC TYLENOL [Concomitant]
  4. VITAMIN D [Concomitant]
     Active Substance: VITAMIN D NOS
  5. LEVOTHYROXINE. [Concomitant]
     Active Substance: LEVOTHYROXINE
  6. GENERIC ALIGN PROBIOTIC [Concomitant]
  7. HYDROCHLOROTHIAZIDE. [Concomitant]
     Active Substance: HYDROCHLOROTHIAZIDE
  8. PLACEBO ASPIRIN [Concomitant]

REACTIONS (11)
  - Social avoidant behaviour [None]
  - Sleep disorder [None]
  - Anxiety [None]
  - Dizziness [None]
  - Vertigo [None]
  - Photopsia [None]
  - Paraesthesia [None]
  - Dyspnoea [None]
  - Visual impairment [None]
  - Heart rate irregular [None]
  - Pain [None]

NARRATIVE: CASE EVENT DATE: 20191129
